FAERS Safety Report 7327419-3 (Version None)
Quarter: 2011Q1

REPORT INFORMATION
  Report Type: 
  Country: None (occurrence: None)
  Receive Date: 20110303
  Receipt Date: 20110222
  Transmission Date: 20110831
  Serious: Yes (Other)
  Sender: FDA-Public Use
  Company Number: DE-AMGEN-DEUSP2011011319

PATIENT
  Sex: Female

DRUGS (3)
  1. ENBREL [Suspect]
     Indication: PRODUCT USED FOR UNKNOWN INDICATION
     Dosage: 50 MG, WEEKLY
     Dates: start: 20100506
  2. ARAVA [Concomitant]
     Indication: POLYARTHRITIS
     Dosage: 20 MG, UNK
  3. PREDNISOLON                        /00016201/ [Concomitant]
     Indication: POLYARTHRITIS
     Dosage: 2.5 MG, 1X/DAY

REACTIONS (7)
  - FORMICATION [None]
  - CARDIAC DISORDER [None]
  - ERYTHEMA [None]
  - STRESS [None]
  - ABDOMINAL PAIN UPPER [None]
  - PRURITUS [None]
  - FATIGUE [None]
